FAERS Safety Report 5414394-1 (Version None)
Quarter: 2007Q3

REPORT INFORMATION
  Report Type: 
  Country: None (occurrence: None)
  Receive Date: 20070814
  Receipt Date: 20070807
  Transmission Date: 20080115
  Serious: Yes (Hospitalization, Other)
  Sender: FDA-Public Use
  Company Number: US-SHR-US-2007-024287

PATIENT
  Age: 65 Year
  Sex: Female

DRUGS (2)
  1. BETASERON [Suspect]
     Indication: SECONDARY PROGRESSIVE MULTIPLE SCLEROSIS
     Route: 058
     Dates: start: 20030601, end: 20041001
  2. BETASERON [Suspect]
     Dosage: 8 MIU, EVERY 2D
     Route: 058
     Dates: start: 20061106, end: 20070715

REACTIONS (6)
  - ABSCESS NECK [None]
  - BLOOD PRESSURE DECREASED [None]
  - HYPOAESTHESIA [None]
  - MALAISE [None]
  - OVARIAN CYST [None]
  - TONSILLITIS [None]
